FAERS Safety Report 6099921-6 (Version None)
Quarter: 2009Q1

REPORT INFORMATION
  Report Type: 
  Country: None (occurrence: None)
  Receive Date: 20090226
  Receipt Date: 20090217
  Transmission Date: 20090719
  Serious: Yes (Hospitalization)
  Sender: FDA-Public Use
  Company Number: DSA_33249_2009

PATIENT
  Sex: Female

DRUGS (2)
  1. TAVOR /00273201/ (TAVOR - LORAZAPAM) (NOT SPECIFIED) [Suspect]
     Dosage: (25 MG 1X, NOT THE PRESCRIBED AMOUNT ORAL)
     Route: 048
     Dates: start: 20090216, end: 20090216
  2. MIRTAZAPINE [Suspect]
     Dosage: (750 MG 1X, NOT THE PRESCRIBED AMOUNT ORAL)
     Route: 048
     Dates: start: 20090216, end: 20090216

REACTIONS (3)
  - INTENTIONAL OVERDOSE [None]
  - SUICIDE ATTEMPT [None]
  - TACHYCARDIA [None]
